FAERS Safety Report 5093270-0 (Version None)
Quarter: 2006Q3

REPORT INFORMATION
  Report Type: 
  Country: None (occurrence: None)
  Receive Date: 20060828
  Receipt Date: 20060821
  Transmission Date: 20061208
  Serious: Yes (Hospitalization)
  Sender: FDA-Public Use
  Company Number: 2006BI002924

PATIENT
  Age: 58 Year
  Sex: Female

DRUGS (6)
  1. AVONEX [Suspect]
     Indication: MULTIPLE SCLEROSIS
     Dosage: 30 UG; QW; IM
     Route: 030
     Dates: start: 20040317, end: 20060601
  2. TRANXENE [Concomitant]
  3. REQUIP [Concomitant]
  4. PERCOCET [Concomitant]
  5. AMBIEN [Concomitant]
  6. ELAVIL [Concomitant]

REACTIONS (4)
  - ARRHYTHMIA [None]
  - DYSPNOEA [None]
  - ECONOMIC PROBLEM [None]
  - TOTAL LUNG CAPACITY DECREASED [None]
